FAERS Safety Report 4693592-9 (Version None)
Quarter: 2005Q2

REPORT INFORMATION
  Report Type: 
  Country: None (occurrence: None)
  Receive Date: 20050617
  Receipt Date: 20050609
  Transmission Date: 20051028
  Serious: Yes (Disabling)
  Sender: FDA-Public Use
  Company Number: US-ROCHE-407498

PATIENT

DRUGS (1)
  1. ACCUTANE [Suspect]
     Indication: ACNE
     Route: 048

REACTIONS (10)
  - ALOPECIA [None]
  - COLITIS [None]
  - DEPRESSION [None]
  - GASTROINTESTINAL DISORDER [None]
  - IMMUNE SYSTEM DISORDER [None]
  - INTERNAL INJURY [None]
  - INTESTINAL HAEMORRHAGE [None]
  - MULTI-ORGAN DISORDER [None]
  - MUSCLE DISORDER [None]
  - THYROID DISORDER [None]
